FAERS Safety Report 26008682 (Version 2)
Quarter: 2025Q4

REPORT INFORMATION
  Report Type: Report from Study
  Country: US (occurrence: US)
  Receive Date: 20251106
  Receipt Date: 20251119
  Transmission Date: 20260117
  Serious: No
  Sender: JOHNSON AND JOHNSON
  Company Number: US-JNJFOC-20251023712

PATIENT
  Age: 57 Year
  Sex: Female

DRUGS (2)
  1. TREMFYA [Suspect]
     Active Substance: GUSELKUMAB
     Indication: Colitis ulcerative
     Dosage: STRENGTH: 200.00 MG / 2.00 ML
     Route: 058
  2. RINVOQ [Concomitant]
     Active Substance: UPADACITINIB
     Indication: Colitis ulcerative
     Route: 048

REACTIONS (3)
  - Product use issue [Unknown]
  - Product label issue [Unknown]
  - Wrong technique in product usage process [Unknown]

NARRATIVE: CASE EVENT DATE: 20251017
